FAERS Safety Report 8180688-2 (Version None)
Quarter: 2012Q1

REPORT INFORMATION
  Report Type: 
  Country: None (occurrence: None)
  Receive Date: 20120221
  Receipt Date: 20120207
  Transmission Date: 20120608
  Serious: Yes (Hospitalization)
  Sender: FDA-Public Use
  Company Number: 2011PROUSA00873

PATIENT
  Age: 60 Year
  Sex: Male
  Weight: 144.6 kg

DRUGS (12)
  1. ASPIRIN [Concomitant]
  2. DIOVAN [Concomitant]
  3. LIPITOR [Concomitant]
  4. MULTI B /00212701/ (NICOTINAMIDE, PYRIDOXINE HYDROCHLORIDE, RIBOFLAVIN [Concomitant]
  5. NIASPAN [Concomitant]
  6. PROVENGE [Suspect]
     Dosage: 250 ML,SINGLE, INTRAVENOUS
     Route: 042
     Dates: start: 20111118, end: 20111118
  7. FISH OIL (FISH OIL) [Concomitant]
  8. TOPROL-XL [Concomitant]
  9. COUMADIN [Concomitant]
  10. VITAMIN C /00008001/ (ASCORBIC ACID) [Concomitant]
  11. PROVENGE [Suspect]
     Indication: PROSTATE CANCER METASTATIC
     Dosage: 250 ML, SINGLE, INTRAVENOUS
     Route: 042
     Dates: start: 20111104, end: 20111104
  12. VICODIN [Concomitant]

REACTIONS (5)
  - DEVICE RELATED INFECTION [None]
  - STAPHYLOCOCCAL INFECTION [None]
  - THROMBOSIS IN DEVICE [None]
  - CARDIAC VALVE VEGETATION [None]
  - ENDOCARDITIS [None]
